FAERS Safety Report 15984427 (Version 5)
Quarter: 2022Q1

REPORT INFORMATION
  Report Type: Spontaneous
  Country: US (occurrence: None)
  Receive Date: 20190220
  Receipt Date: 20220316
  Transmission Date: 20220423
  Serious: Yes (Other)
  Sender: FDA-Public Use
  Company Number: 2018SF21541

PATIENT
  Age: 20572 Day
  Sex: Female
  Weight: 154.2 kg

DRUGS (29)
  1. NEXIUM [Suspect]
     Active Substance: ESOMEPRAZOLE MAGNESIUM
     Indication: Gastrooesophageal reflux disease
     Route: 048
     Dates: start: 2001, end: 2015
  2. NEXIUM [Suspect]
     Active Substance: ESOMEPRAZOLE MAGNESIUM
     Indication: Gastrooesophageal reflux disease
     Route: 048
     Dates: start: 20040211, end: 20050418
  3. PRILOSEC [Suspect]
     Active Substance: OMEPRAZOLE MAGNESIUM
     Indication: Gastrooesophageal reflux disease
     Route: 048
     Dates: start: 1989, end: 2015
  4. PRILOSEC [Suspect]
     Active Substance: OMEPRAZOLE MAGNESIUM
     Indication: Gastrooesophageal reflux disease
     Route: 048
     Dates: start: 20030101, end: 20150101
  5. PRILOSEC [Suspect]
     Active Substance: OMEPRAZOLE MAGNESIUM
     Indication: Gastrooesophageal reflux disease
     Dosage: GENERIC
     Route: 065
     Dates: start: 20090610, end: 20090710
  6. PRILOSEC OTC [Suspect]
     Active Substance: OMEPRAZOLE MAGNESIUM
     Route: 048
     Dates: start: 2003, end: 2015
  7. PREVACID [Suspect]
     Active Substance: LANSOPRAZOLE
     Indication: Gastrooesophageal reflux disease
     Route: 065
     Dates: start: 1995, end: 2015
  8. PREVACID [Suspect]
     Active Substance: LANSOPRAZOLE
     Indication: Gastrooesophageal reflux disease
     Route: 065
     Dates: start: 19990101, end: 20030101
  9. PROTONIX [Suspect]
     Active Substance: PANTOPRAZOLE SODIUM
     Route: 065
     Dates: start: 2000, end: 2015
  10. PROTONIX [Suspect]
     Active Substance: PANTOPRAZOLE SODIUM
     Route: 065
  11. METFORMIN [Concomitant]
     Active Substance: METFORMIN HYDROCHLORIDE
     Indication: Blood glucose increased
     Dates: start: 200312, end: 200506
  12. ZOCOR [Concomitant]
     Active Substance: SIMVASTATIN
  13. CLONIDINE [Concomitant]
     Active Substance: CLONIDINE
     Indication: Hypertension
     Dates: start: 200402, end: 201602
  14. MICARDIS [Concomitant]
     Active Substance: TELMISARTAN
  15. PROMETHAZINE [Concomitant]
     Active Substance: PROMETHAZINE HYDROCHLORIDE
  16. TETRACYCLINE [Concomitant]
     Active Substance: TETRACYCLINE
  17. AMOXICILLIN [Concomitant]
     Active Substance: AMOXICILLIN
  18. CEPHALEXIN [Concomitant]
     Active Substance: CEPHALEXIN
  19. ALLOPURINOL [Concomitant]
     Active Substance: ALLOPURINOL
  20. COLCHICINE [Concomitant]
     Active Substance: COLCHICINE
  21. FLUCONAZOLE [Concomitant]
     Active Substance: FLUCONAZOLE
  22. NOVOLOG [Concomitant]
     Active Substance: INSULIN ASPART
  23. AMLODIPINE [Concomitant]
     Active Substance: AMLODIPINE BESYLATE
  24. JANUVIA [Concomitant]
     Active Substance: SITAGLIPTIN PHOSPHATE
  25. ANASTROZOLE [Concomitant]
     Active Substance: ANASTROZOLE
  26. VALSARTAN [Concomitant]
     Active Substance: VALSARTAN
  27. TOPROL XL [Concomitant]
     Active Substance: METOPROLOL SUCCINATE
     Indication: Hypertension
     Dates: start: 200312, end: 201512
  28. SERTRALINE [Concomitant]
     Active Substance: SERTRALINE HYDROCHLORIDE
     Indication: Depression
     Dates: start: 200402, end: 201806
  29. RANITIDINE [Concomitant]
     Active Substance: RANITIDINE
     Dates: start: 201509, end: 201801

REACTIONS (5)
  - Acute kidney injury [Not Recovered/Not Resolved]
  - Chronic kidney disease [Not Recovered/Not Resolved]
  - Renal injury [Unknown]
  - Hyperparathyroidism secondary [Unknown]
  - Nephrogenic anaemia [Unknown]

NARRATIVE: CASE EVENT DATE: 20150505
